FAERS Safety Report 11966187 (Version 1)
Quarter: 2016Q1

REPORT INFORMATION
  Report Type: Spontaneous
  Country: PH (occurrence: PH)
  Receive Date: 20160127
  Receipt Date: 20160127
  Transmission Date: 20160526
  Serious: Yes (Death)
  Sender: FDA-Public Use
  Company Number: PH-PFIZER INC-2016036182

PATIENT
  Sex: Male

DRUGS (2)
  1. LYRICA [Suspect]
     Active Substance: PREGABALIN
  2. CELEBREX [Suspect]
     Active Substance: CELECOXIB

REACTIONS (2)
  - Haematopoietic neoplasm [Fatal]
  - Pneumonia [Fatal]
